FAERS Safety Report 9370345 (Version 2)
Quarter: 2013Q3

REPORT INFORMATION
  Report Type: Report from Study
  Country: AU (occurrence: AU)
  Receive Date: 20130626
  Receipt Date: 20130712
  Transmission Date: 20140515
  Serious: Yes (Life-Threatening, Hospitalization, Other)
  Sender: FDA-Public Use
  Company Number: AU-BAYER-201042624GPV

PATIENT
  Age: 23 Year
  Sex: Female
  Weight: 67 kg

DRUGS (4)
  1. LEVONORGESTREL (LCS, 12?G/D, 28X30) [Suspect]
     Indication: CONTRACEPTION
     Dosage: 12 ?G (DAILY DOSE), CONT, INTRA-UTERINE
     Route: 015
     Dates: start: 20090709, end: 20101007
  2. INNER HEALTH PLUS [Concomitant]
     Indication: ROUTINE HEALTH MAINTENANCE
     Dosage: 1 DF (DAILY DOSE), BID, ORAL
     Route: 048
     Dates: start: 20100628
  3. ASPIRIN [Concomitant]
     Indication: HEADACHE
     Dosage: 600 MG, PRN
     Route: 048
     Dates: start: 1999
  4. PANADEINE PLUS [Concomitant]
     Indication: BACK PAIN
     Dosage: UNK
     Route: 048
     Dates: start: 20100420

REACTIONS (6)
  - Vulvovaginitis streptococcal [Recovered/Resolved]
  - Vulvovaginal discomfort [Recovered/Resolved]
  - Beta haemolytic streptococcal infection [Recovered/Resolved]
  - Tonsillitis [Recovered/Resolved]
  - Vulvovaginal candidiasis [None]
  - Procedural pain [None]
